FAERS Safety Report 16420111 (Version 1)
Quarter: 2019Q2

REPORT INFORMATION
  Report Type: Spontaneous
  Country: US (occurrence: US)
  Receive Date: 20190612
  Receipt Date: 20190612
  Transmission Date: 20190711
  Serious: No
  Sender: FDA-Public Use
  Company Number: US-ENDO PHARMACEUTICALS INC-2018-042500

PATIENT
  Age: 11 Year
  Sex: Female
  Weight: 97.51 kg

DRUGS (6)
  1. SUPPRELIN LA [Suspect]
     Active Substance: HISTRELIN ACETATE
     Indication: PRECOCIOUS PUBERTY
     Dosage: UNK MG, UNKNOWN
     Route: 058
  2. OZEMPIC [Concomitant]
     Active Substance: SEMAGLUTIDE
     Indication: BLOOD GLUCOSE ABNORMAL
  3. DEXAMETHASONE. [Concomitant]
     Active Substance: DEXAMETHASONE
     Indication: BLOOD TESTOSTERONE INCREASED
  4. SUPPRELIN LA [Suspect]
     Active Substance: HISTRELIN ACETATE
     Dosage: UNK MG, UNKNOWN
     Route: 058
     Dates: start: 2013
  5. SUPPRELIN LA [Suspect]
     Active Substance: HISTRELIN ACETATE
     Dosage: UNK MG, UNKNOWN
     Route: 058
     Dates: start: 2014
  6. SUPPRELIN LA [Suspect]
     Active Substance: HISTRELIN ACETATE
     Dosage: UNK MG, UNKNOWN
     Route: 058
     Dates: start: 2012

REACTIONS (8)
  - Weight increased [Not Recovered/Not Resolved]
  - Incorrect product administration duration [Not Recovered/Not Resolved]
  - Delayed menarche [Not Recovered/Not Resolved]
  - Polycystic ovaries [Unknown]
  - Blood testosterone increased [Not Recovered/Not Resolved]
  - Device breakage [Unknown]
  - Weight loss poor [Not Recovered/Not Resolved]
  - Procedural complication [Unknown]

NARRATIVE: CASE EVENT DATE: 2012
